FAERS Safety Report 8391961-7 (Version None)
Quarter: 2012Q2

REPORT INFORMATION
  Report Type: 
  Country: None (occurrence: None)
  Receive Date: 20120529
  Receipt Date: 20120521
  Transmission Date: 20120825
  Serious: Yes (Hospitalization)
  Sender: FDA-Public Use
  Company Number: MW-VIIV HEALTHCARE LIMITED-B0804100A

PATIENT
  Age: 10 Year
  Sex: Female

DRUGS (3)
  1. LAMIVUDINE (EPIVIR HBV) [Suspect]
     Indication: ANTIVIRAL PROPHYLAXIS
     Route: 065
  2. NEVIRAPINE [Suspect]
     Indication: ANTIVIRAL PROPHYLAXIS
     Route: 065
  3. STAVUDINE [Suspect]
     Indication: ANTIVIRAL PROPHYLAXIS
     Route: 065

REACTIONS (10)
  - TOXIC EPIDERMAL NECROLYSIS [None]
  - OEDEMA [None]
  - MUCOUS MEMBRANE DISORDER [None]
  - INCORRECT DOSE ADMINISTERED [None]
  - MALAISE [None]
  - RASH PRURITIC [None]
  - PYREXIA [None]
  - STOMATITIS [None]
  - CONDITION AGGRAVATED [None]
  - ANAEMIA [None]
